FAERS Safety Report 9737483 (Version 1)
Quarter: 2013Q4

REPORT INFORMATION
  Report Type: Spontaneous
  Country: GB (occurrence: GB)
  Receive Date: 20131206
  Receipt Date: 20131206
  Transmission Date: 20140711
  Serious: Yes (Life-Threatening, Hospitalization, Disabling, Other)
  Sender: FDA-Public Use
  Company Number: GB-ASTRAZENECA-2013SE89030

PATIENT
  Age: 27 Year
  Sex: Female

DRUGS (12)
  1. QUETIAPINE [Suspect]
     Indication: PSYCHIATRIC SYMPTOM
     Route: 048
  2. CYCLIZINE [Concomitant]
  3. FUROSEMIDE [Concomitant]
  4. HYDROXYZINE [Concomitant]
  5. LORATADINE [Concomitant]
  6. MEBEVERINE [Concomitant]
  7. OMEPRAZOLE [Concomitant]
  8. RAMIPRIL [Concomitant]
  9. SANDO-K [Concomitant]
  10. SENNA [Concomitant]
  11. SPIRONOLACTONE [Concomitant]
  12. WARFARIN [Concomitant]

REACTIONS (3)
  - Cardiac failure [Not Recovered/Not Resolved]
  - Ejection fraction decreased [Not Recovered/Not Resolved]
  - Left ventricular dysfunction [Not Recovered/Not Resolved]
